FAERS Safety Report 9325238 (Version 11)
Quarter: 2014Q1

REPORT INFORMATION
  Report Type: Report from Study
  Country: RU (occurrence: RU)
  Receive Date: 20130604
  Receipt Date: 20140128
  Transmission Date: 20141002
  Serious: Yes (Hospitalization)
  Sender: FDA-Public Use
  Company Number: RU-009507513-1305RUS017570

PATIENT
  Age: 22 Year
  Sex: Male
  Weight: 70 kg

DRUGS (5)
  1. BOCEPREVIR [Suspect]
     Indication: CHRONIC HEPATITIS C
     Dosage: 4 CAPSULES, TID
     Route: 048
     Dates: start: 20130110, end: 20130527
  2. RIBAVIRIN [Suspect]
     Indication: CHRONIC HEPATITIS C
     Dosage: 2 CAPSULES , QAM
     Route: 048
     Dates: start: 20121211, end: 20130527
  3. RIBAVIRIN [Suspect]
     Dosage: 3 CAPSULES, QPM
     Route: 048
     Dates: start: 20121211, end: 20130527
  4. PEGASYS [Suspect]
     Indication: CHRONIC HEPATITIS C
     Dosage: 180 MICROGRAM, QW
     Route: 058
     Dates: start: 20121211, end: 20130521
  5. ACETAMINOPHEN [Concomitant]
     Indication: PYREXIA
     Dosage: TOTAL DAILY DOSE: 500 MG, QD
     Route: 048
     Dates: start: 20130420

REACTIONS (1)
  - Pulmonary tuberculosis [Recovered/Resolved with Sequelae]
